FAERS Safety Report 22835437 (Version 2)
Quarter: 2023Q4

REPORT INFORMATION
  Report Type: Other
  Country: US (occurrence: None)
  Receive Date: 20230818
  Receipt Date: 20231009
  Transmission Date: 20240110
  Serious: Yes (Other)
  Sender: FDA-Public Use
  Company Number: US-ROCHE-3363945

PATIENT
  Age: 46 Year
  Sex: Male

DRUGS (1)
  1. RITUXAN [Suspect]
     Active Substance: RITUXIMAB
     Indication: Nephrotic syndrome
     Route: 042

REACTIONS (3)
  - Retinal detachment [Not Recovered/Not Resolved]
  - Off label use [Unknown]
  - Pyrexia [Unknown]
